FAERS Safety Report 8173732-X (Version None)
Quarter: 2012Q1

REPORT INFORMATION
  Report Type: 
  Country: None (occurrence: None)
  Receive Date: 20120227
  Receipt Date: 20120215
  Transmission Date: 20120608
  Serious: Yes (Hospitalization)
  Sender: FDA-Public Use
  Company Number: 130025

PATIENT
  Age: 62 Year
  Sex: Male
  Weight: 69 kg

DRUGS (1)
  1. LEUCOVORIN CALCIUM [Suspect]
     Indication: COLORECTAL CANCER METASTATIC
     Dates: start: 20111024, end: 20120116

REACTIONS (6)
  - CEREBELLAR ATROPHY [None]
  - BACK PAIN [None]
  - ASTHENIA [None]
  - DIZZINESS [None]
  - URINARY INCONTINENCE [None]
  - ELECTROCARDIOGRAM ST SEGMENT ELEVATION [None]
